FAERS Safety Report 9536197 (Version 1)
Quarter: 2013Q3

REPORT INFORMATION
  Report Type: Spontaneous
  Country: US (occurrence: None)
  Receive Date: 20130917
  Receipt Date: 20130917
  Transmission Date: 20140515
  Serious: Yes (Other)
  Sender: FDA-Public Use
  Company Number: None

PATIENT
  Age: 30 Year
  Sex: Female
  Weight: 68.04 kg

DRUGS (2)
  1. PROZAC [Suspect]
     Indication: DEPRESSION
     Dosage: NOT SURE- I THINK TWICE A DAY MOUTH
     Route: 048
  2. SINUS/ALLERGY [Concomitant]

REACTIONS (3)
  - Aggression [None]
  - Suicidal ideation [None]
  - Homicidal ideation [None]
